FAERS Safety Report 4675724-1 (Version None)
Quarter: 2005Q2

REPORT INFORMATION
  Report Type: 
  Country: None (occurrence: None)
  Receive Date: 20050527
  Receipt Date: 20050222
  Transmission Date: 20051028
  Serious: No
  Sender: FDA-Public Use
  Company Number: US-BRISTOL-MYERS SQUIBB COMPANY-12872164

PATIENT
  Age: 52 Year
  Sex: Male
  Weight: 93 kg

DRUGS (5)
  1. ERBITUX [Suspect]
     Indication: COLORECTAL CANCER METASTATIC
     Dosage: 1ST DOSE, ALSO REC'D ON 15-FEB-05, AND 22-FEB-05
     Route: 042
     Dates: start: 20050208, end: 20050208
  2. BENADRYL [Concomitant]
     Indication: PREMEDICATION
     Dates: start: 20050208, end: 20050208
  3. IRINOTECAN [Concomitant]
     Indication: COLORECTAL CANCER
     Dosage: WAS RECEIVING ALTERNATING WEEKS
     Dates: start: 20020101
  4. DECADRON [Concomitant]
     Indication: PREMEDICATION
  5. ZOFRAN [Concomitant]
     Indication: PREMEDICATION

REACTIONS (1)
  - RASH [None]
